FAERS Safety Report 20023938 (Version 2)
Quarter: 2021Q4

REPORT INFORMATION
  Report Type: Spontaneous
  Country: US (occurrence: US)
  Receive Date: 20211102
  Receipt Date: 20211130
  Transmission Date: 20220303
  Serious: Yes (Other)
  Sender: FDA-Public Use
  Company Number: US-SMITH AND NEPHEW, INC-2021SMT00056

PATIENT
  Sex: Female
  Weight: 97.506 kg

DRUGS (7)
  1. COLLAGENASE SANTYL [Suspect]
     Active Substance: COLLAGENASE CLOSTRIDIUM HISTOLYTICUM
     Indication: Wound necrosis
     Dosage: UNK
     Route: 061
     Dates: start: 202101, end: 2021
  2. COLLAGENASE SANTYL [Suspect]
     Active Substance: COLLAGENASE CLOSTRIDIUM HISTOLYTICUM
     Dosage: ^ABOUT AN INCH AROUND THE WHOLE THING^ AT LEAST ONCE A DAY
     Route: 061
     Dates: start: 202108, end: 2021
  3. COLLAGENASE SANTYL [Suspect]
     Active Substance: COLLAGENASE CLOSTRIDIUM HISTOLYTICUM
     Dosage: ^AROUND HALF OF IT^ AT LEAST ONCE A DAY
     Route: 061
     Dates: start: 2021
  4. COLLAGENASE SANTYL [Suspect]
     Active Substance: COLLAGENASE CLOSTRIDIUM HISTOLYTICUM
     Dosage: IN TINY WOUND WHEN THE DRESSING CAME OFF
     Dates: start: 2021
  5. UNSPECIFIED INGREDIENT [Concomitant]
     Active Substance: UNSPECIFIED INGREDIENT
  6. UNSPECIFIED INGREDIENT [Concomitant]
     Active Substance: UNSPECIFIED INGREDIENT
  7. ^A BUNCH OF REGULAR MEDS^ [Concomitant]

REACTIONS (4)
  - Wound necrosis [Recovering/Resolving]
  - Sweat gland disorder [Not Recovered/Not Resolved]
  - Dry skin [Not Recovered/Not Resolved]
  - Skin exfoliation [Not Recovered/Not Resolved]

NARRATIVE: CASE EVENT DATE: 20210101
